FAERS Safety Report 16662921 (Version 1)
Quarter: 2019Q3

REPORT INFORMATION
  Report Type: Report from Study
  Country: US (occurrence: US)
  Receive Date: 20190802
  Receipt Date: 20190802
  Transmission Date: 20191004
  Serious: Yes (Hospitalization)
  Sender: FDA-Public Use
  Company Number: US-EXELIXIS-CABO-19018295

PATIENT
  Sex: Male
  Weight: 93.42 kg

DRUGS (11)
  1. PENICILLIN V POTASSIUM. [Concomitant]
     Active Substance: PENICILLIN V POTASSIUM
  2. PREDNISONE. [Concomitant]
     Active Substance: PREDNISONE
  3. AFINITOR [Concomitant]
     Active Substance: EVEROLIMUS
  4. FAMOTIDINE. [Concomitant]
     Active Substance: FAMOTIDINE
  5. METOPROLOL TARTRATE. [Concomitant]
     Active Substance: METOPROLOL TARTRATE
  6. ADVIL [Concomitant]
     Active Substance: IBUPROFEN
  7. METOLAZONE. [Concomitant]
     Active Substance: METOLAZONE
  8. FUROSEMIDE. [Concomitant]
     Active Substance: FUROSEMIDE
  9. POTASSIUM CHLORIDE. [Concomitant]
     Active Substance: POTASSIUM CHLORIDE
  10. CABOMETYX [Suspect]
     Active Substance: CABOZANTINIB S-MALATE
     Indication: RENAL CELL CARCINOMA
     Dosage: 60 MG, QD
     Route: 048
  11. LENVIMA [Concomitant]
     Active Substance: LENVATINIB

REACTIONS (1)
  - Dehydration [Unknown]
